FAERS Safety Report 5935493-1 (Version None)
Quarter: 2008Q4

REPORT INFORMATION
  Report Type: 
  Country: None (occurrence: None)
  Receive Date: 20081030
  Receipt Date: 20081002
  Transmission Date: 20090506
  Serious: No
  Sender: FDA-Public Use
  Company Number: US-BAYER-200810624BCC

PATIENT
  Age: 62 Year
  Sex: Male
  Weight: 73 kg

DRUGS (4)
  1. ALEVE [Suspect]
     Indication: BACK PAIN
     Dosage: TOTAL DAILY DOSE: 440 MG  UNIT DOSE: 220 MG
     Dates: start: 20080201, end: 20080204
  2. ZOCOR [Concomitant]
  3. TRANDOLAPRIL [Concomitant]
  4. ZETIA [Concomitant]

REACTIONS (2)
  - BLOOD PRESSURE INCREASED [None]
  - EAR OPERATION [None]
